FAERS Safety Report 7510455-1 (Version None)
Quarter: 2011Q2

REPORT INFORMATION
  Report Type: 
  Country: None (occurrence: None)
  Receive Date: 20110527
  Receipt Date: 20110524
  Transmission Date: 20111010
  Serious: Yes (Other)
  Sender: FDA-Public Use
  Company Number: US-PFIZER INC-2011112368

PATIENT
  Sex: Female
  Weight: 68.027 kg

DRUGS (8)
  1. LYRICA [Suspect]
     Dosage: HALF OF 150MG
     Dates: start: 20110401
  2. AMILORIDE HCL AND HYDROCHLOROTHIAZIDE [Concomitant]
     Indication: FLUID RETENTION
     Dosage: 5/50 MG, UNK
  3. LEVOTHYROXINE [Concomitant]
     Indication: HYPOTHYROIDISM
     Dosage: UNK
  4. LYRICA [Suspect]
     Indication: NEURALGIA
     Dosage: 75 MG, 2X/DAY
     Route: 048
  5. PROTONIX [Concomitant]
     Dosage: 40MG, ONCE AT NIGHT
  6. METHOCARBAMOL [Concomitant]
     Dosage: 750MG ONCE AT NIGHT
  7. VALTREX [Concomitant]
     Dosage: 500 MG, 2X/DAY
  8. LYRICA [Suspect]
     Dosage: 150 MG, 2X/DAY
     Dates: start: 20110405

REACTIONS (3)
  - SOMNOLENCE [None]
  - BALANCE DISORDER [None]
  - FALL [None]
